FAERS Safety Report 9337662 (Version 1)
Quarter: 2013Q2

REPORT INFORMATION
  Report Type: Spontaneous
  Country: CL (occurrence: CL)
  Receive Date: 20130607
  Receipt Date: 20130607
  Transmission Date: 20140414
  Serious: Yes (Hospitalization)
  Sender: FDA-Public Use
  Company Number: CL-INCYTE CORPORATION-2013IN001118

PATIENT
  Sex: Female

DRUGS (1)
  1. JAKAVI [Suspect]
     Indication: MYELOFIBROSIS
     Dosage: 25 MG, BID
     Route: 048
     Dates: start: 20121129, end: 20130525

REACTIONS (1)
  - Acute leukaemia [Not Recovered/Not Resolved]
